FAERS Safety Report 17314846 (Version 2)
Quarter: 2021Q1

REPORT INFORMATION
  Report Type: Spontaneous
  Country: US (occurrence: US)
  Receive Date: 20200124
  Receipt Date: 20210122
  Transmission Date: 20210419
  Serious: No
  Sender: FDA-Public Use
  Company Number: US-PCCINC-2019-PEL-000180

PATIENT

DRUGS (2)
  1. GABLOFEN [Suspect]
     Active Substance: BACLOFEN
     Indication: MUSCLE SPASTICITY
     Dosage: 600 MICROGRAM/DAY
     Route: 037
  2. GABLOFEN [Suspect]
     Active Substance: BACLOFEN
     Indication: PRODUCT USED FOR UNKNOWN INDICATION
     Dosage: 481 MICROGRAMS PER DAY
     Route: 037

REACTIONS (3)
  - Impaired healing [Recovered/Resolved]
  - Adhesion [Recovered/Resolved]
  - Drug ineffective [Recovered/Resolved]
